FAERS Safety Report 6741591-5 (Version None)
Quarter: 2010Q2

REPORT INFORMATION
  Report Type: 
  Country: None (occurrence: None)
  Receive Date: 20100526
  Receipt Date: 20100519
  Transmission Date: 20101027
  Serious: Yes (Hospitalization)
  Sender: FDA-Public Use
  Company Number: US-ABBOTT-10P-163-0646282-00

PATIENT
  Sex: Female
  Weight: 73.548 kg

DRUGS (12)
  1. HUMIRA [Suspect]
     Indication: RHEUMATOID ARTHRITIS
     Dates: start: 20080101, end: 20100405
  2. HUMIRA [Suspect]
     Dates: start: 20100519
  3. TYLENOL (CAPLET) [Concomitant]
     Indication: PAIN
  4. MICRO-K [Concomitant]
     Indication: BLOOD POTASSIUM DECREASED
     Dates: start: 19900101
  5. SYNTHROID [Concomitant]
     Indication: HYPOTHYROIDISM
  6. ZEGERID [Concomitant]
     Indication: GASTROOESOPHAGEAL REFLUX DISEASE
  7. FUROSEMIDE [Concomitant]
     Indication: DRUG USE FOR UNKNOWN INDICATION
  8. ASPIRIN [Concomitant]
     Indication: DRUG USE FOR UNKNOWN INDICATION
  9. AMLODIPINE [Concomitant]
     Indication: HYPERTENSION
  10. CARVEDILOL [Concomitant]
     Indication: HYPERTENSION
  11. ALLOPURINOL [Concomitant]
     Indication: GOUT
  12. LIPITOR [Concomitant]
     Indication: MYOCARDIAL INFARCTION

REACTIONS (7)
  - BLOOD COUNT ABNORMAL [None]
  - BLOOD IRON DECREASED [None]
  - DIARRHOEA [None]
  - EXOSTOSIS [None]
  - MENISCUS LESION [None]
  - OSTEOARTHRITIS [None]
  - VOMITING [None]
